FAERS Safety Report 5892705-0 (Version None)
Quarter: 2008Q3

REPORT INFORMATION
  Report Type: 
  Country: None (occurrence: None)
  Receive Date: 20080923
  Receipt Date: 20080917
  Transmission Date: 20090109
  Serious: Yes (Other)
  Sender: FDA-Public Use
  Company Number: PHBS2008BM05741

PATIENT
  Age: 19 Year
  Sex: Female

DRUGS (1)
  1. OXYTOCIN [Suspect]
     Route: 042

REACTIONS (3)
  - ECHOCARDIOGRAM ABNORMAL [None]
  - ELECTROCARDIOGRAM ST SEGMENT DEPRESSION [None]
  - TROPONIN INCREASED [None]
